FAERS Safety Report 8579528-9 (Version None)
Quarter: 2012Q3

REPORT INFORMATION
  Report Type: 
  Country: None (occurrence: None)
  Receive Date: 20120808
  Receipt Date: 20120730
  Transmission Date: 20120928
  Serious: Yes (Other)
  Sender: FDA-Public Use
  Company Number: US-JNJFOC-20120800896

PATIENT
  Sex: Male
  Weight: 74.39 kg

DRUGS (1)
  1. REMICADE [Suspect]
     Indication: RHEUMATOID ARTHRITIS
     Route: 042
     Dates: start: 20010101

REACTIONS (6)
  - BLOOD PRESSURE INCREASED [None]
  - DYSURIA [None]
  - FALL [None]
  - JOINT DISLOCATION [None]
  - HEART RATE INCREASED [None]
  - CALCULUS BLADDER [None]
